FAERS Safety Report 24237675 (Version 1)
Quarter: 2024Q3

REPORT INFORMATION
  Report Type: Spontaneous
  Country: FR (occurrence: FR)
  Receive Date: 20240822
  Receipt Date: 20240822
  Transmission Date: 20241017
  Serious: Yes (Death)
  Sender: B BRAUN
  Company Number: FR-B.Braun Medical Inc.-2160724

PATIENT
  Age: 79 Year
  Sex: Male
  Weight: 61.4 kg

DRUGS (26)
  1. ACETAMINOPHEN [Suspect]
     Active Substance: ACETAMINOPHEN
     Indication: Pain
     Route: 042
     Dates: start: 20240309, end: 20240407
  2. FASTURTEC [Suspect]
     Active Substance: RASBURICASE
  3. Diosmectite Viatris [Concomitant]
  4. METOCLOPRAMIDE HYDROCHLORIDE [Concomitant]
     Active Substance: METOCLOPRAMIDE HYDROCHLORIDE
  5. ONDANSETRON [Concomitant]
     Active Substance: ONDANSETRON
  6. ENTECAVIR [Concomitant]
     Active Substance: ENTECAVIR
  7. FUROSEMIDE [Concomitant]
     Active Substance: FUROSEMIDE
  8. RIMIFON [Concomitant]
     Active Substance: ISONIAZID
  9. INNOHEP [Concomitant]
     Active Substance: TINZAPARIN SODIUM
  10. Midodrine Viatris [Concomitant]
  11. Chlorhexidine chlorobutanol Arrow [Concomitant]
  12. Carteol [Concomitant]
  13. EPLERENONE [Concomitant]
     Active Substance: EPLERENONE
  14. ACUPAN [Concomitant]
     Active Substance: NEFOPAM HYDROCHLORIDE
  15. LATANOPROST [Concomitant]
     Active Substance: LATANOPROST
  16. VENETOCLAX [Concomitant]
     Active Substance: VENETOCLAX
  17. Racecadotrol Arrow [Concomitant]
  18. ALFUZOSIN [Concomitant]
     Active Substance: ALFUZOSIN
  19. PANTOPRAZOLE SODIUM [Concomitant]
     Active Substance: PANTOPRAZOLE SODIUM
  20. Vitamine B6 Arrow [Concomitant]
  21. LEUCOVORIN CALCIUM [Concomitant]
     Active Substance: LEUCOVORIN CALCIUM
  22. SODIUM BICARBONATE [Concomitant]
     Active Substance: SODIUM BICARBONATE
  23. VALSARTAN [Concomitant]
     Active Substance: VALSARTAN
  24. VITAMINE B12 GERDA [Concomitant]
  25. PHYTONADIONE [Suspect]
     Active Substance: PHYTONADIONE
  26. COTRIMOXAZOLE [Suspect]
     Active Substance: SULFAMETHOXAZOLE\TRIMETHOPRIM

REACTIONS (3)
  - Glucose-6-phosphate dehydrogenase deficiency [Fatal]
  - Product communication issue [Fatal]
  - Contraindicated product prescribed [Fatal]
